FAERS Safety Report 4423616-5 (Version None)
Quarter: 2004Q3

REPORT INFORMATION
  Report Type: 
  Country: None (occurrence: None)
  Receive Date: 20040714
  Receipt Date: 20010129
  Transmission Date: 20050211
  Serious: Yes (Hospitalization)
  Sender: FDA-Public Use
  Company Number: 200110867US

PATIENT
  Age: 33 Year
  Sex: Female

DRUGS (1)
  1. TAXOTERE [Suspect]
     Indication: BREAST CANCER
     Dosage: Q3W
     Dates: start: 20010104, end: 20010104

REACTIONS (5)
  - ARTHRALGIA [None]
  - BONE PAIN [None]
  - FEBRILE NEUTROPENIA [None]
  - MYALGIA [None]
  - NAIL BED TENDERNESS [None]
